FAERS Safety Report 5802850-3 (Version None)
Quarter: 2008Q3

REPORT INFORMATION
  Report Type: 
  Country: None (occurrence: None)
  Receive Date: 20080708
  Receipt Date: 20080623
  Transmission Date: 20090109
  Serious: Yes (Hospitalization)
  Sender: FDA-Public Use
  Company Number: PHRM2007FR02472

PATIENT
  Sex: Female
  Weight: 55 kg

DRUGS (1)
  1. EXJADE [Suspect]
     Indication: IRON OVERLOAD
     Dosage: 1250 MG, QD
     Route: 048
     Dates: start: 20070301, end: 20070923

REACTIONS (13)
  - ACIDOSIS [None]
  - BLOOD PHOSPHORUS DECREASED [None]
  - BLOOD SODIUM DECREASED [None]
  - CONDITION AGGRAVATED [None]
  - CONSTIPATION [None]
  - DIZZINESS [None]
  - GLYCOSURIA [None]
  - HYPOKALAEMIA [None]
  - PARAESTHESIA [None]
  - PROTEINURIA [None]
  - RENAL TUBULAR DISORDER [None]
  - SERUM FERRITIN INCREASED [None]
  - VOMITING [None]
